FAERS Safety Report 5382586-6 (Version None)
Quarter: 2007Q3

REPORT INFORMATION
  Report Type: 
  Country: None (occurrence: None)
  Receive Date: 20070710
  Receipt Date: 20070627
  Transmission Date: 20080115
  Serious: Yes (Other)
  Sender: FDA-Public Use
  Company Number: PHBS2007BR10779

PATIENT
  Sex: Male

DRUGS (7)
  1. EXELON [Suspect]
     Indication: MEMORY IMPAIRMENT
     Dosage: 1.5 MG/D
     Route: 048
     Dates: start: 20020101
  2. EXELON [Suspect]
     Dosage: 6 MG, BID
     Route: 048
  3. MEMANTINE HCL [Suspect]
     Indication: NEURODEGENERATIVE DISORDER
     Dosage: 10 MG, BID
     Route: 048
  4. MEMANTINE HCL [Suspect]
     Dosage: 10 MG, BID
     Route: 048
     Dates: start: 20070401
  5. TRIVASTAL [Concomitant]
     Route: 048
  6. TIMOPTIC [Concomitant]
     Indication: GLAUCOMA
     Dosage: 1 DRP, QHS
  7. TRAVATAN [Concomitant]
     Indication: GLAUCOMA
     Dosage: 1 DRP, QHS
     Route: 065

REACTIONS (5)
  - ASPARTATE AMINOTRANSFERASE INCREASED [None]
  - BLOOD CHOLESTEROL INCREASED [None]
  - BLOOD CREATINE PHOSPHOKINASE INCREASED [None]
  - MUSCLE CONTRACTURE [None]
  - OSTEOARTHRITIS [None]
